FAERS Safety Report 15981529 (Version 6)
Quarter: 2020Q1

REPORT INFORMATION
  Report Type: Spontaneous
  Country: US (occurrence: US)
  Receive Date: 20190219
  Receipt Date: 20200205
  Transmission Date: 20200409
  Serious: Yes (Other)
  Sender: FDA-Public Use
  Company Number: US-ASTRAZENECA-2018SF64673

PATIENT
  Age: 834 Month
  Sex: Female
  Weight: 90.7 kg

DRUGS (62)
  1. CORICIDIN (ACETAMINOPHEN/CHLORPHENIRAMINE) [Concomitant]
     Active Substance: ACETAMINOPHEN\CHLORPHENIRAMINE
  2. KEPPRA [Concomitant]
     Active Substance: LEVETIRACETAM
  3. ALKER-SELTZER [Concomitant]
     Dosage: TWO TABLETS DAILY
     Route: 048
     Dates: start: 20180101
  4. PRILOSEC [Suspect]
     Active Substance: OMEPRAZOLE MAGNESIUM
     Indication: GASTROOESOPHAGEAL REFLUX DISEASE
     Dosage: GENERIC
     Route: 065
     Dates: start: 20160211
  5. PRILOSEC OTC [Suspect]
     Active Substance: OMEPRAZOLE MAGNESIUM
     Route: 048
  6. PREVACID [Suspect]
     Active Substance: LANSOPRAZOLE
     Indication: GASTROOESOPHAGEAL REFLUX DISEASE
     Route: 065
  7. CLOPIDOGREL [Concomitant]
     Active Substance: CLOPIDOGREL BISULFATE
  8. METOPROLOL TARTRATE. [Concomitant]
     Active Substance: METOPROLOL TARTRATE
  9. PEPCID [Concomitant]
     Active Substance: FAMOTIDINE
  10. ALTACE [Concomitant]
     Active Substance: RAMIPRIL
     Route: 048
  11. PRILOSEC [Suspect]
     Active Substance: OMEPRAZOLE MAGNESIUM
     Indication: GASTROOESOPHAGEAL REFLUX DISEASE
     Route: 048
  12. PRILOSEC [Suspect]
     Active Substance: OMEPRAZOLE MAGNESIUM
     Indication: GASTROOESOPHAGEAL REFLUX DISEASE
     Dosage: GENERIC
     Route: 048
     Dates: start: 20120822, end: 20120824
  13. NEXIUM [Suspect]
     Active Substance: ESOMEPRAZOLE MAGNESIUM
     Route: 048
  14. LORATADINE. [Concomitant]
     Active Substance: LORATADINE
  15. MORPHINE [Concomitant]
     Active Substance: MORPHINE
  16. HYDRALAZINE [Concomitant]
     Active Substance: HYDRALAZINE HYDROCHLORIDE
  17. ALBUTEROL. [Concomitant]
     Active Substance: ALBUTEROL
  18. PIPERACILLIN. [Concomitant]
     Active Substance: PIPERACILLIN SODIUM
     Dosage: 600 MG TAKE ONE1 ABLET BY MOUTH DAILY
  19. PRILOSEC [Suspect]
     Active Substance: OMEPRAZOLE MAGNESIUM
     Indication: GASTROOESOPHAGEAL REFLUX DISEASE
     Route: 048
     Dates: start: 19980101, end: 20171231
  20. NEXIUM 24HR [Suspect]
     Active Substance: ESOMEPRAZOLE MAGNESIUM
     Route: 048
  21. PLAVIX [Concomitant]
     Active Substance: CLOPIDOGREL BISULFATE
  22. CLONIDINE. [Concomitant]
     Active Substance: CLONIDINE
  23. CALCIUM CARBONATE. [Concomitant]
     Active Substance: CALCIUM CARBONATE
  24. TAMOXIFEN [Concomitant]
     Active Substance: TAMOXIFEN
  25. GENTAMICIN. [Concomitant]
     Active Substance: GENTAMICIN
  26. TOBRAMYCIN. [Concomitant]
     Active Substance: TOBRAMYCIN
  27. NALOXONE [Concomitant]
     Active Substance: NALOXONE
  28. RANITIDINE. [Concomitant]
     Active Substance: RANITIDINE
     Route: 065
     Dates: start: 2010, end: 2019
  29. PREVACID [Suspect]
     Active Substance: LANSOPRAZOLE
     Indication: GASTROOESOPHAGEAL REFLUX DISEASE
     Route: 065
     Dates: start: 19960101, end: 19981231
  30. DEXILANT [Suspect]
     Active Substance: DEXLANSOPRAZOLE
     Indication: GASTROOESOPHAGEAL REFLUX DISEASE
     Route: 065
     Dates: start: 20191111, end: 20191211
  31. LASIX [Concomitant]
     Active Substance: FUROSEMIDE
     Dosage: 40 MG TAKE ONE TABLET BY MOUTH DAILY
  32. GLUCOSAMINE [Concomitant]
     Active Substance: GLUCOSAMINE
  33. NITROSTAT [Concomitant]
     Active Substance: NITROGLYCERIN
  34. TOLTERODINE [Concomitant]
     Active Substance: TOLTERODINE
  35. VALIUM [Concomitant]
     Active Substance: DIAZEPAM
  36. HEPARIN [Concomitant]
     Active Substance: HEPARIN SODIUM
  37. VITAMIN D [Concomitant]
     Active Substance: VITAMIN D NOS
     Dosage: 600 MG TAKE ONE1 ABLET BY MOUTH DAILY
  38. FOLIC ACID. [Concomitant]
     Active Substance: FOLIC ACID
     Dosage: 1 MG
  39. PREVACID 24 HR [Suspect]
     Active Substance: LANSOPRAZOLE
     Route: 065
  40. TRAMADOL. [Concomitant]
     Active Substance: TRAMADOL
  41. PROMETHAZINE [Concomitant]
     Active Substance: PROMETHAZINE HYDROCHLORIDE
  42. ZOCOR [Concomitant]
     Active Substance: SIMVASTATIN
  43. LISINOPRIL. [Concomitant]
     Active Substance: LISINOPRIL
  44. METOPROLOL. [Concomitant]
     Active Substance: METOPROLOL
  45. LORTAB [Concomitant]
     Active Substance: ACETAMINOPHEN\HYDROCODONE BITARTRATE
  46. PANTOPRAZOLE [Concomitant]
     Active Substance: PANTOPRAZOLE
  47. LESCOL [Concomitant]
     Active Substance: FLUVASTATIN SODIUM
     Dosage: 80 MG DAILY
  48. TENORMIN [Concomitant]
     Active Substance: ATENOLOL
     Dosage: 25 MG
  49. ROLAIDS [Concomitant]
     Active Substance: CALCIUM CARBONATE\MAGNESIUM HYDROXIDE
     Route: 065
  50. REGLAN [Concomitant]
     Active Substance: METOCLOPRAMIDE HYDROCHLORIDE
  51. CARDIZEM [Concomitant]
     Active Substance: DILTIAZEM HYDROCHLORIDE
  52. VERAPAMIL [Concomitant]
     Active Substance: VERAPAMIL HYDROCHLORIDE
  53. ASPIRIN. [Concomitant]
     Active Substance: ASPIRIN
     Indication: CARDIAC DISORDER
     Route: 065
     Dates: start: 2010
  54. FISH OIL [Concomitant]
     Active Substance: FISH OIL
  55. XYLOCAINE [Concomitant]
     Active Substance: LIDOCAINE HYDROCHLORIDE
  56. ATORVASTATIN [Concomitant]
     Active Substance: ATORVASTATIN
  57. DOCUSATE SODIUM. [Concomitant]
     Active Substance: DOCUSATE SODIUM
     Route: 048
  58. PRILOSEC [Suspect]
     Active Substance: OMEPRAZOLE MAGNESIUM
     Indication: GASTROOESOPHAGEAL REFLUX DISEASE
     Route: 048
     Dates: start: 19990101, end: 20171231
  59. FLEXERIL [Concomitant]
     Active Substance: CYCLOBENZAPRINE HYDROCHLORIDE
  60. ONDANSETRON [Concomitant]
     Active Substance: ONDANSETRON
  61. VANCOMYCIN [Concomitant]
     Active Substance: VANCOMYCIN
  62. DIPHENHYDRAMINE. [Concomitant]
     Active Substance: DIPHENHYDRAMINE

REACTIONS (2)
  - Chronic kidney disease [Not Recovered/Not Resolved]
  - Renal injury [Unknown]

NARRATIVE: CASE EVENT DATE: 201610
